FAERS Safety Report 10095517 (Version 2)
Quarter: 2014Q3

REPORT INFORMATION
  Report Type: Spontaneous
  Country: IT (occurrence: IT)
  Receive Date: 20140422
  Receipt Date: 20140724
  Transmission Date: 20150326
  Serious: Yes (Hospitalization)
  Sender: FDA-Public Use
  Company Number: IT-PFIZER INC-2014109946

PATIENT
  Age: 88 Year
  Sex: Female

DRUGS (7)
  1. SEQUACOR [Interacting]
     Active Substance: BISOPROLOL
     Indication: HYPERTENSION
     Dosage: 2 DF, DAILY
     Route: 048
     Dates: start: 20131001, end: 20140128
  2. CARDIOASPIRIN [Concomitant]
     Active Substance: ASPIRIN
     Dosage: UNK
  3. SINVACOR [Concomitant]
     Active Substance: SIMVASTATIN
     Dosage: UNK
  4. SEQUACOR [Interacting]
     Active Substance: BISOPROLOL
     Indication: MYOCARDIAL ISCHAEMIA
  5. NORVASC [Concomitant]
     Active Substance: AMLODIPINE BESYLATE
     Dosage: UNK
  6. TRIATEC [Suspect]
     Active Substance: RAMIPRIL
     Indication: HYPERTENSION
     Dosage: 5 MG, DAILY
     Route: 048
     Dates: start: 20131001, end: 20140130
  7. LASIX [Interacting]
     Active Substance: FUROSEMIDE
     Indication: HYPERTENSION
     Dosage: 25 MG, DAILY
     Route: 048
     Dates: start: 20131001, end: 20140130

REACTIONS (3)
  - Sinus bradycardia [Unknown]
  - Drug interaction [Unknown]
  - Presyncope [Unknown]

NARRATIVE: CASE EVENT DATE: 20140128
